FAERS Safety Report 23397763 (Version 2)
Quarter: 2024Q1

REPORT INFORMATION
  Report Type: Spontaneous
  Country: ES (occurrence: ES)
  Receive Date: 20240112
  Receipt Date: 20240223
  Transmission Date: 20240410
  Serious: Yes (Other)
  Sender: FDA-Public Use
  Company Number: ES-GLAXOSMITHKLINE-ES2023EME175590

PATIENT
  Age: 40 Year
  Sex: Male

DRUGS (4)
  1. VIAGRA [Suspect]
     Active Substance: SILDENAFIL CITRATE
     Indication: Product used for unknown indication
     Dosage: UNK
     Route: 065
  2. DUTASTERIDE [Suspect]
     Active Substance: DUTASTERIDE
     Indication: Androgenetic alopecia
     Dosage: UNK
     Route: 065
     Dates: start: 2019
  3. MINOXIDIL [Concomitant]
     Active Substance: MINOXIDIL
     Indication: Product used for unknown indication
     Dosage: 1 DOSAGE FORM, QOD
     Route: 065
  4. MINOXIDIL [Concomitant]
     Active Substance: MINOXIDIL
     Dosage: 1 DOSAGE FORM, QD
     Route: 065

REACTIONS (9)
  - Erectile dysfunction [Not Recovered/Not Resolved]
  - Alopecia [Unknown]
  - Hair transplant [Unknown]
  - Malaise [Unknown]
  - Sperm concentration decreased [Unknown]
  - Libido decreased [Unknown]
  - Condition aggravated [Unknown]
  - Product use in unapproved indication [Unknown]
  - Drug effective for unapproved indication [Unknown]
